FAERS Safety Report 16129809 (Version 1)
Quarter: 2019Q1

REPORT INFORMATION
  Report Type: Spontaneous
  Country: US (occurrence: US)
  Receive Date: 20190328
  Receipt Date: 20190328
  Transmission Date: 20190418
  Serious: No
  Sender: FDA-Public Use
  Company Number: US-SEBELA IRELAND LIMITED-2019SEB00007

PATIENT
  Age: 81 Year
  Sex: Female
  Weight: 69.39 kg

DRUGS (3)
  1. NAFTIN [Suspect]
     Active Substance: NAFTIFINE HYDROCHLORIDE
     Dosage: UNK UNK, 1X/DAY
     Route: 061
     Dates: start: 2018, end: 201812
  2. ^A LOT OF OTHER MEDICATIONS BUT NONE TOPICAL^ [Concomitant]
  3. NAFTIN [Suspect]
     Active Substance: NAFTIFINE HYDROCHLORIDE
     Indication: ONYCHOMYCOSIS
     Dosage: UNK UNK, 2X/DAY
     Route: 061
     Dates: start: 201812, end: 201901

REACTIONS (3)
  - Erythema [Not Recovered/Not Resolved]
  - Swelling [Not Recovered/Not Resolved]
  - Skin irritation [Not Recovered/Not Resolved]

NARRATIVE: CASE EVENT DATE: 201901
